FAERS Safety Report 9729491 (Version 1)
Quarter: 2013Q4

REPORT INFORMATION
  Report Type: Spontaneous
  Country: US (occurrence: US)
  Receive Date: 20131204
  Receipt Date: 20131204
  Transmission Date: 20140711
  Serious: No
  Sender: FDA-Public Use
  Company Number: US-GILEAD-2009-0021699

PATIENT
  Age: 89 Year
  Sex: Female

DRUGS (14)
  1. LETAIRIS [Suspect]
     Indication: PULMONARY ARTERIAL HYPERTENSION
     Route: 048
     Dates: start: 20090422
  2. COUMADIN [Concomitant]
  3. ASPIRIN [Concomitant]
  4. LISINOPRIL [Concomitant]
  5. LASIX [Concomitant]
  6. BYSTOLIC [Concomitant]
  7. POTASSIUM [Concomitant]
  8. CLONAZEPAM [Concomitant]
  9. TRAMADOL [Concomitant]
  10. NEXIUM [Concomitant]
  11. LEVOTHROID [Concomitant]
  12. WELCHOL [Concomitant]
  13. CITRACAL PLUS [Concomitant]
  14. FISH OIL [Concomitant]

REACTIONS (1)
  - Oedema peripheral [Unknown]
